FAERS Safety Report 13523775 (Version 1)
Quarter: 2017Q2

REPORT INFORMATION
  Report Type: Spontaneous
  Country: US (occurrence: US)
  Receive Date: 20170508
  Receipt Date: 20170508
  Transmission Date: 20170830
  Serious: No
  Sender: FDA-Public Use
  Company Number: US-VIFOR (INTERNATIONAL) INC.-VIT-2017-03311

PATIENT
  Sex: Female

DRUGS (10)
  1. NIFEDIPINE. [Concomitant]
     Active Substance: NIFEDIPINE
  2. HYDROXYZINE [Concomitant]
     Active Substance: HYDROXYZINE HYDROCHLORIDE
  3. ERGOCALCIFEROL. [Concomitant]
     Active Substance: ERGOCALCIFEROL
  4. METOPROLOL. [Concomitant]
     Active Substance: METOPROLOL
  5. CENTRUM [Concomitant]
     Active Substance: VITAMINS
  6. NEXIUM [Concomitant]
     Active Substance: ESOMEPRAZOLE MAGNESIUM
  7. PARACETAMOL [Concomitant]
     Active Substance: ACETAMINOPHEN
  8. VELTASSA [Suspect]
     Active Substance: PATIROMER
     Indication: HYPERKALAEMIA
     Route: 048
     Dates: start: 20161110
  9. METFORMIN [Concomitant]
     Active Substance: METFORMIN HYDROCHLORIDE
  10. FENOFIBRATE. [Concomitant]
     Active Substance: FENOFIBRATE

REACTIONS (2)
  - Drug dose omission [Unknown]
  - Diarrhoea [Not Recovered/Not Resolved]
